FAERS Safety Report 15697096 (Version 4)
Quarter: 2019Q2

REPORT INFORMATION
  Report Type: Spontaneous
  Country: US (occurrence: US)
  Receive Date: 20181206
  Receipt Date: 20190620
  Transmission Date: 20190711
  Serious: No
  Sender: FDA-Public Use
  Company Number: US-PFIZER INC-2018497583

PATIENT
  Age: 61 Year
  Sex: Female
  Weight: 103 kg

DRUGS (13)
  1. LISINOPRIL. [Concomitant]
     Active Substance: LISINOPRIL
     Dosage: UNK
     Dates: start: 2006
  2. DOCETAXEL. [Suspect]
     Active Substance: DOCETAXEL
     Indication: BREAST CANCER METASTATIC
     Dosage: 20 MG, CYCLIC (EVERY THREE WEEKS, 06 CYCLES)
     Dates: start: 20130923
  3. DOCETAXEL. [Suspect]
     Active Substance: DOCETAXEL
     Dosage: 20 MG, CYCLIC (EVERY THREE WEEKS, 06 CYCLES)
     Dates: start: 20131104
  4. ADRIAMYCIN [Concomitant]
     Active Substance: DOXORUBICIN HYDROCHLORIDE
     Indication: CHEMOTHERAPY
     Dosage: UNK
  5. CYTOXAN [Concomitant]
     Active Substance: CYCLOPHOSPHAMIDE
     Indication: CHEMOTHERAPY
     Dosage: UNK
  6. DOCETAXEL. [Suspect]
     Active Substance: DOCETAXEL
     Dosage: 75 MG, CYCLIC (EVERY THREE WEEKS, 06 CYCLES)
     Dates: start: 20131126
  7. DOCETAXEL. [Suspect]
     Active Substance: DOCETAXEL
     Dosage: 20 MG, CYCLIC (EVERY THREE WEEKS, 06 CYCLES)
     Dates: start: 20131217, end: 20140107
  8. DOXIL [Concomitant]
     Active Substance: DOXORUBICIN HYDROCHLORIDE
     Indication: CHEMOTHERAPY
     Dosage: UNK
  9. METFORMIN [Concomitant]
     Active Substance: METFORMIN HYDROCHLORIDE
     Dosage: UNK
     Dates: start: 2006
  10. LEVEMIR [Concomitant]
     Active Substance: INSULIN DETEMIR
     Dosage: UNK
     Dates: start: 2006
  11. DOCETAXEL. [Suspect]
     Active Substance: DOCETAXEL
     Dosage: 20 MG, CYCLIC (EVERY THREE WEEKS, 06 CYCLES)
     Dates: start: 20131014
  12. NEOSAR [Concomitant]
     Active Substance: CYCLOPHOSPHAMIDE
     Indication: CHEMOTHERAPY
     Dosage: UNK
  13. TAXOTERE [Concomitant]
     Active Substance: DOCETAXEL
     Indication: CHEMOTHERAPY
     Dosage: UNK

REACTIONS (5)
  - Hair colour changes [Not Recovered/Not Resolved]
  - Alopecia [Not Recovered/Not Resolved]
  - Hair texture abnormal [Not Recovered/Not Resolved]
  - Hair disorder [Not Recovered/Not Resolved]
  - Madarosis [Not Recovered/Not Resolved]

NARRATIVE: CASE EVENT DATE: 201406
